FAERS Safety Report 7998075-6 (Version None)
Quarter: 2011Q4

REPORT INFORMATION
  Report Type: 
  Country: None (occurrence: None)
  Receive Date: 20111221
  Receipt Date: 20110105
  Transmission Date: 20120403
  Serious: No
  Sender: FDA-Public Use
  Company Number: US-GLAXOSMITHKLINE-A0903348A

PATIENT
  Age: 50 Year
  Sex: Male

DRUGS (3)
  1. LEVOTHYROXINE SODIUM [Concomitant]
     Dosage: 25MCG PER DAY
     Route: 048
  2. ANUSOL [Concomitant]
     Route: 054
  3. LOVAZA [Suspect]
     Indication: BLOOD TRIGLYCERIDES INCREASED
     Route: 048
     Dates: start: 20100802, end: 20100824

REACTIONS (1)
  - SKIN ODOUR ABNORMAL [None]
